FAERS Safety Report 5835588-7 (Version None)
Quarter: 2008Q3

REPORT INFORMATION
  Report Type: 
  Country: None (occurrence: None)
  Receive Date: 20080804
  Receipt Date: 20080723
  Transmission Date: 20090109
  Serious: Yes (Hospitalization)
  Sender: FDA-Public Use
  Company Number: US024171

PATIENT
  Age: 85 Year
  Sex: Female
  Weight: 54.4316 kg

DRUGS (4)
  1. ACTIQ [Suspect]
     Indication: ARTHRITIS
     Dosage: 200 UG 1 TO 3 DAILY PRN, BUCCAL
     Route: 002
     Dates: start: 20050101
  2. ACTIQ [Suspect]
     Indication: FIBROMYALGIA
     Dosage: 200 UG 1 TO 3 DAILY PRN, BUCCAL
     Route: 002
     Dates: start: 20050101
  3. ACTIQ [Suspect]
     Indication: SYSTEMIC LUPUS ERYTHEMATOSUS
     Dosage: 200 UG 1 TO 3 DAILY PRN, BUCCAL
     Route: 002
     Dates: start: 20050101
  4. FENTANYL TRANSDERMAL SYSTEM [Concomitant]

REACTIONS (3)
  - DRUG INEFFECTIVE [None]
  - LOCALISED INFECTION [None]
  - PHARMACEUTICAL PRODUCT COMPLAINT [None]
